FAERS Safety Report 4385527-3 (Version None)
Quarter: 2004Q2

REPORT INFORMATION
  Report Type: 
  Country: None (occurrence: None)
  Receive Date: 20040622
  Receipt Date: 20040603
  Transmission Date: 20050107
  Serious: Yes (Death, Hospitalization)
  Sender: FDA-Public Use
  Company Number: A03200302825

PATIENT
  Age: 60 Year
  Sex: Male

DRUGS (5)
  1. PLAVIX [Suspect]
     Indication: CORONARY ANGIOPLASTY
     Dosage: 150 MG ONCE - ORAL
     Route: 048
     Dates: start: 20020805, end: 20021201
  2. PLAVIX [Suspect]
     Indication: STENT PLACEMENT
     Dosage: 150 MG ONCE - ORAL
     Route: 048
     Dates: start: 20020805, end: 20021201
  3. QUINAPRIL HYDROCHLORIDE [Concomitant]
  4. DIGOXIN [Concomitant]
  5. ASPIRIN [Concomitant]

REACTIONS (25)
  - ACUTE RESPIRATORY FAILURE [None]
  - BILIRUBIN CONJUGATED INCREASED [None]
  - BLOOD BILIRUBIN INCREASED [None]
  - BLOOD LACTATE DEHYDROGENASE INCREASED [None]
  - CARDIAC FAILURE CONGESTIVE [None]
  - GLYCOPEPTIDE ANTIBIOTIC RESISTANT ENTEROCOCCAL INFECTION [None]
  - HAEMODIALYSIS [None]
  - HAEMOLYTIC ANAEMIA [None]
  - HICCUPS [None]
  - HYPERTENSION [None]
  - LEUKOCYTOSIS [None]
  - LUNG NEOPLASM [None]
  - MICROANGIOPATHY [None]
  - MULTI-ORGAN FAILURE [None]
  - POST PROCEDURAL HAEMORRHAGE [None]
  - PULMONARY OEDEMA [None]
  - RED BLOOD CELL SCHISTOCYTES PRESENT [None]
  - RED BLOOD CELL SEDIMENTATION RATE INCREASED [None]
  - RENAL FAILURE ACUTE [None]
  - SHOCK [None]
  - SPLENIC ABSCESS [None]
  - SPLENOMEGALY [None]
  - SURGICAL PROCEDURE REPEATED [None]
  - THROMBOTIC THROMBOCYTOPENIC PURPURA [None]
  - UROSEPSIS [None]
